FAERS Safety Report 6999710-1 (Version None)
Quarter: 2010Q3

REPORT INFORMATION
  Report Type: 
  Country: None (occurrence: None)
  Receive Date: 20100920
  Receipt Date: 20070926
  Transmission Date: 20110219
  Serious: Yes (Other)
  Sender: FDA-Public Use
  Company Number: US-ASTRAZENECA-2006UW07423

PATIENT
  Age: 16979 Day
  Sex: Female
  Weight: 72.6 kg

DRUGS (13)
  1. SEROQUEL [Suspect]
     Indication: ANXIETY
     Dosage: 100-200 MG
     Route: 048
     Dates: start: 20040101, end: 20070101
  2. SEROQUEL [Suspect]
     Indication: INSOMNIA
     Dosage: 100-200 MG
     Route: 048
     Dates: start: 20040101, end: 20070101
  3. SEROQUEL [Suspect]
     Indication: DEPRESSION
     Dosage: 100-200 MG
     Route: 048
     Dates: start: 20040101, end: 20070101
  4. SEROQUEL [Suspect]
     Indication: SLEEP DISORDER
     Dosage: 100-200 MG
     Route: 048
     Dates: start: 20040101, end: 20070101
  5. SEROQUEL [Suspect]
     Dosage: 100 - 600 MG
     Route: 048
     Dates: start: 20041109
  6. SEROQUEL [Suspect]
     Dosage: 100 - 600 MG
     Route: 048
     Dates: start: 20041109
  7. SEROQUEL [Suspect]
     Dosage: 100 - 600 MG
     Route: 048
     Dates: start: 20041109
  8. SEROQUEL [Suspect]
     Dosage: 100 - 600 MG
     Route: 048
     Dates: start: 20041109
  9. THORAZINE [Concomitant]
     Dates: start: 19830101
  10. DEXATRIM [Concomitant]
  11. TOPAMAX [Concomitant]
     Indication: AFFECTIVE DISORDER
     Route: 048
     Dates: start: 20041109
  12. EFFEXOR XR [Concomitant]
     Indication: DEPRESSION
     Dosage: 37.5 MG PER DAY, THEN 75 MG PER DAY FOR A WEEK, THEN 150 MG AT NIGHT
     Route: 048
     Dates: start: 20041109
  13. DIAZEPAM [Concomitant]
     Dosage: 10 MG 2 PILLS A DAY
     Route: 048
     Dates: start: 20060302

REACTIONS (4)
  - DIABETES MELLITUS [None]
  - HYPERGLYCAEMIA [None]
  - PANCREATITIS [None]
  - TYPE 1 DIABETES MELLITUS [None]
